FAERS Safety Report 17475347 (Version 4)
Quarter: 2023Q1

REPORT INFORMATION
  Report Type: Spontaneous
  Country: US (occurrence: US)
  Receive Date: 20200228
  Receipt Date: 20230308
  Transmission Date: 20230417
  Serious: Yes (Death, Hospitalization, Other)
  Sender: FDA-Public Use
  Company Number: US-PFIZER INC-2020087292

PATIENT
  Age: 78 Year
  Sex: Male

DRUGS (2)
  1. XELJANZ XR [Suspect]
     Active Substance: TOFACITINIB CITRATE
     Indication: Rheumatoid arthritis
     Dosage: 11 MG, 1X/DAY
     Route: 048
     Dates: start: 20170322
  2. XELJANZ XR [Suspect]
     Active Substance: TOFACITINIB CITRATE
     Dosage: 11 MG, 1X/DAY
     Route: 048
     Dates: start: 20200728

REACTIONS (21)
  - Renal failure [Fatal]
  - Coronary artery disease [Fatal]
  - Atrioventricular block second degree [Unknown]
  - Urinary tract infection [Unknown]
  - Acute kidney injury [Unknown]
  - Haematuria [Unknown]
  - Anaemia [Unknown]
  - Squamous cell carcinoma of lung [Unknown]
  - Oesophageal candidiasis [Unknown]
  - Arrhythmia [Unknown]
  - Aortic valve incompetence [Unknown]
  - Haemoglobin decreased [Unknown]
  - Pain [Unknown]
  - Dyspnoea [Unknown]
  - Iron deficiency anaemia [Unknown]
  - Hiatus hernia [Unknown]
  - Diverticulum intestinal [Unknown]
  - Dizziness [Unknown]
  - Left ventricular hypertrophy [Unknown]
  - Left ventricular dysfunction [Unknown]
  - Normochromic normocytic anaemia [Unknown]

NARRATIVE: CASE EVENT DATE: 20170501
